FAERS Safety Report 18678730 (Version 3)
Quarter: 2021Q1

REPORT INFORMATION
  Report Type: Spontaneous
  Country: US (occurrence: US)
  Receive Date: 20201230
  Receipt Date: 20210107
  Transmission Date: 20210419
  Serious: No
  Sender: FDA-Public Use
  Company Number: US-SA-2020SA374901

PATIENT

DRUGS (2)
  1. DUPIXENT [Suspect]
     Active Substance: DUPILUMAB
     Indication: DERMATITIS ATOPIC
     Dosage: 600 MG (2 PENS), 1X
     Route: 058
     Dates: start: 20201216, end: 20201216
  2. DUPIXENT [Suspect]
     Active Substance: DUPILUMAB
     Dosage: 300 MG, QOW
     Route: 058
     Dates: start: 202012, end: 202012

REACTIONS (10)
  - Sinonasal obstruction [Unknown]
  - Headache [Unknown]
  - Muscle spasms [Unknown]
  - Myalgia [Unknown]
  - Nasal discomfort [Unknown]
  - Flushing [Unknown]
  - Cough [Unknown]
  - Oropharyngeal pain [Unknown]
  - Aphonia [Unknown]
  - Adverse drug reaction [Unknown]

NARRATIVE: CASE EVENT DATE: 202012
